FAERS Safety Report 23997423 (Version 1)
Quarter: 2024Q2

REPORT INFORMATION
  Report Type: Spontaneous
  Country: US (occurrence: US)
  Receive Date: 20240621
  Receipt Date: 20240621
  Transmission Date: 20240715
  Serious: No
  Sender: FDA-Public Use
  Company Number: US-BRAEBURN-US-BRA-24-000285

PATIENT
  Age: 33 Year
  Sex: Male
  Weight: 63.492 kg

DRUGS (1)
  1. BRIXADI [Suspect]
     Active Substance: BUPRENORPHINE
     Indication: Drug use disorder
     Dosage: 32 MILLIGRAM/0.64ML, WEEKLY
     Route: 058
     Dates: start: 20240117, end: 20240129

REACTIONS (2)
  - Injection site cyst [Recovering/Resolving]
  - Injection site abscess [Recovering/Resolving]

NARRATIVE: CASE EVENT DATE: 20240318
